FAERS Safety Report 23568985 (Version 2)
Quarter: 2024Q1

REPORT INFORMATION
  Report Type: Spontaneous
  Country: FR (occurrence: FR)
  Receive Date: 20240227
  Receipt Date: 20240305
  Transmission Date: 20240410
  Serious: Yes (Hospitalization, Other)
  Sender: FDA-Public Use
  Company Number: FR-TAKEDA-2024TUS016792

PATIENT
  Age: 72 Year
  Sex: Female

DRUGS (1)
  1. HYQVIA [Suspect]
     Active Substance: HUMAN IMMUNOGLOBULIN G\HYALURONIDASE (HUMAN RECOMBINANT)
     Indication: Infection
     Dosage: UNK
     Route: 058

REACTIONS (5)
  - Respiratory distress [Unknown]
  - Dermatitis allergic [Unknown]
  - Injection site erythema [Unknown]
  - Injection site swelling [Unknown]
  - Product use in unapproved indication [Unknown]
